FAERS Safety Report 18196395 (Version 5)
Quarter: 2021Q3

REPORT INFORMATION
  Report Type: Report from Study
  Country: CA (occurrence: CA)
  Receive Date: 20200825
  Receipt Date: 20210913
  Transmission Date: 20211014
  Serious: Yes (Hospitalization, Other)
  Sender: FDA-Public Use
  Company Number: CA-AMGEN-CANSL2020128953

PATIENT
  Age: 47 Year
  Sex: Female

DRUGS (1)
  1. OTEZLA [Suspect]
     Active Substance: APREMILAST
     Indication: BEHCET^S SYNDROME
     Dosage: 30 MILLIGRAM, BID
     Route: 065
     Dates: start: 202007, end: 202008

REACTIONS (9)
  - Mouth ulceration [Unknown]
  - Unevaluable event [Not Recovered/Not Resolved]
  - Pyrexia [Unknown]
  - Intentional product misuse [Unknown]
  - Tremor [Unknown]
  - Haematemesis [Not Recovered/Not Resolved]
  - Contusion [Unknown]
  - Nasal ulcer [Unknown]
  - Dysphagia [Unknown]

NARRATIVE: CASE EVENT DATE: 2020
